FAERS Safety Report 8192717-0 (Version None)
Quarter: 2012Q1

REPORT INFORMATION
  Report Type: 
  Country: None (occurrence: None)
  Receive Date: 20120221
  Receipt Date: 20111207
  Transmission Date: 20120608
  Serious: No
  Sender: FDA-Public Use
  Company Number: 1000026066

PATIENT
  Age: 70 Year
  Sex: Female

DRUGS (7)
  1. PROPRANOLOL [Suspect]
     Dosage: 5 MG (5 MG, 1 IN 1 D), ORAL
     Route: 048
  2. VIIBRYD [Suspect]
     Indication: DEPRESSION
     Dosage: 10 MG (10 MG, 1 IN 1 D), ORAL 5 MG (5 MG, 1 IN 1 D), ORAL
     Route: 048
     Dates: start: 20110101
  3. VIIBRYD [Suspect]
     Indication: DEPRESSION
     Dosage: 10 MG (10 MG, 1 IN 1 D), ORAL 5 MG (5 MG, 1 IN 1 D), ORAL
     Route: 048
     Dates: start: 20110101, end: 20110101
  4. WELLBUTRIN (BUPROPION HYDROCHLORIDE) (BUPROPION HYDROCHLORIDE) [Concomitant]
  5. VIIBRYD [Suspect]
     Indication: DEPRESSION
     Dosage: 5 MG (5MG, 1 IN 1 D), ORAL
     Route: 048
     Dates: start: 20110901, end: 20110101
  6. VIIBRYD [Suspect]
     Indication: DEPRESSION
     Dosage: 5 MG (5MG, 1 IN 1 D), ORAL
     Route: 048
     Dates: start: 20110901, end: 20110101
  7. AMBIEN (ZOLPIDEM TARTRATE) (10 MILLIGRAM, TABLETS) (ZOLPIDEM TARTRATE) [Concomitant]

REACTIONS (3)
  - PARAESTHESIA [None]
  - VISION BLURRED [None]
  - FEELING ABNORMAL [None]
